FAERS Safety Report 13324463 (Version 4)
Quarter: 2017Q2

REPORT INFORMATION
  Report Type: Spontaneous
  Country: US (occurrence: US)
  Receive Date: 20170310
  Receipt Date: 20170403
  Transmission Date: 20170830
  Serious: Yes (Other)
  Sender: FDA-Public Use
  Company Number: US-ALLERGAN-1708926US

PATIENT
  Age: 58 Year
  Sex: Female

DRUGS (1)
  1. SAVELLA [Suspect]
     Active Substance: MILNACIPRAN HYDROCHLORIDE
     Indication: FIBROMYALGIA
     Dosage: 12.5 MG, BID
     Route: 048

REACTIONS (3)
  - Pain [Unknown]
  - Ankle fracture [Recovering/Resolving]
  - Drug dose omission [Unknown]
